FAERS Safety Report 7352261-7 (Version None)
Quarter: 2011Q1

REPORT INFORMATION
  Report Type: 
  Country: None (occurrence: None)
  Receive Date: 20110309
  Receipt Date: 20110309
  Transmission Date: 20110831
  Serious: Yes (Hospitalization)
  Sender: FDA-Public Use
  Company Number: None

PATIENT
  Age: 57 Year
  Sex: Female

DRUGS (1)
  1. ACTONEL [Suspect]
     Dosage: 75MG 2 TABLETS MONTHLY PO
     Route: 048
     Dates: start: 20110227, end: 20110228

REACTIONS (5)
  - ARTHRALGIA [None]
  - MYALGIA [None]
  - CHEST DISCOMFORT [None]
  - HOT FLUSH [None]
  - DIZZINESS [None]
